FAERS Safety Report 4889458-1 (Version None)
Quarter: 2006Q1

REPORT INFORMATION
  Report Type: 
  Country: None (occurrence: None)
  Receive Date: 20060124
  Receipt Date: 20060117
  Transmission Date: 20060701
  Serious: Yes (Other)
  Sender: FDA-Public Use
  Company Number: US-AVENTIS-200610561GDDC

PATIENT
  Age: 70 Year
  Sex: Male

DRUGS (12)
  1. DOCETAXEL [Suspect]
     Indication: METASTASES TO LUNG
     Route: 042
     Dates: start: 20051201, end: 20051201
  2. DOCETAXEL [Suspect]
     Route: 042
     Dates: start: 20051229, end: 20051229
  3. TARCEVA [Suspect]
     Indication: METASTASES TO LUNG
     Route: 048
     Dates: start: 20051201
  4. CISPLATIN [Suspect]
     Indication: METASTASES TO LUNG
     Route: 042
     Dates: start: 20051201, end: 20051201
  5. CISPLATIN [Suspect]
     Route: 042
     Dates: start: 20051229, end: 20051229
  6. TOPROL-XL [Concomitant]
  7. LEVOTHYROXINE SODIUM [Concomitant]
  8. CALCIUM WITH VITAMIN D [Concomitant]
  9. ASCORBIC ACID [Concomitant]
  10. MULTIVITAMINS, PLAIN [Concomitant]
  11. MEGACE [Concomitant]
  12. UNKNOWN DRUG [Concomitant]

REACTIONS (3)
  - DEHYDRATION [None]
  - FALL [None]
  - HEAD INJURY [None]
